FAERS Safety Report 14291156 (Version 1)
Quarter: 2017Q4

REPORT INFORMATION
  Report Type: Spontaneous
  Country: US (occurrence: US)
  Receive Date: 20171215
  Receipt Date: 20171215
  Transmission Date: 20180321
  Serious: Yes (Other)
  Sender: FDA-Public Use
  Company Number: US-AMGEN-USASP2017183293

PATIENT
  Age: 76 Year
  Sex: Female

DRUGS (1)
  1. PROLIA [Suspect]
     Active Substance: DENOSUMAB
     Indication: OSTEOPOROSIS POSTMENOPAUSAL
     Dosage: 60 MG, Q6MO
     Route: 065
     Dates: start: 201702, end: 201708

REACTIONS (9)
  - Feeling abnormal [Unknown]
  - Abdominal discomfort [Unknown]
  - Impaired gastric emptying [Unknown]
  - Neuropathy peripheral [Unknown]
  - Gait disturbance [Unknown]
  - Eating disorder [Unknown]
  - Balance disorder [Unknown]
  - Anaemia [Unknown]
  - Decreased appetite [Unknown]

NARRATIVE: CASE EVENT DATE: 2017
